FAERS Safety Report 8050236-6 (Version None)
Quarter: 2012Q1

REPORT INFORMATION
  Report Type: 
  Country: None (occurrence: None)
  Receive Date: 20120117
  Receipt Date: 20120111
  Transmission Date: 20120608
  Serious: Yes (Other)
  Sender: FDA-Public Use
  Company Number: US-PFIZER INC-2012008696

PATIENT
  Sex: Female
  Weight: 111 kg

DRUGS (3)
  1. BACLOFEN [Concomitant]
     Dosage: UNK
  2. LYRICA [Suspect]
     Indication: NERVE INJURY
     Dosage: 50 MG, 3X/DAY
     Route: 048
     Dates: start: 20110501
  3. TEGRETOL [Concomitant]
     Dosage: 200 MG, UNK

REACTIONS (3)
  - TRIGEMINAL NEURALGIA [None]
  - PAIN [None]
  - THINKING ABNORMAL [None]
